FAERS Safety Report 5775233-2 (Version None)
Quarter: 2008Q2

REPORT INFORMATION
  Report Type: 
  Country: None (occurrence: None)
  Receive Date: 20080616
  Receipt Date: 20080616
  Transmission Date: 20081010
  Serious: Yes (Other)
  Sender: FDA-Public Use
  Company Number: None

PATIENT
  Sex: Female
  Weight: 61.2356 kg

DRUGS (1)
  1. LISINOPRIL [Suspect]
     Indication: HYPERTENSION
     Dosage: 20MG 1 TABLET/PER DAY
     Dates: start: 20080422, end: 20080505

REACTIONS (8)
  - DRUG HYPERSENSITIVITY [None]
  - DRY EYE [None]
  - DRY SKIN [None]
  - DYSGEUSIA [None]
  - PRURITUS [None]
  - STRAWBERRY TONGUE [None]
  - THIRST [None]
  - VULVOVAGINAL DRYNESS [None]
